FAERS Safety Report 8189324 (Version 5)
Quarter: 2013Q1

REPORT INFORMATION
  Report Type: Report from Study
  Country: US (occurrence: US)
  Receive Date: 20111019
  Receipt Date: 20130318
  Transmission Date: 20140127
  Serious: Yes (Hospitalization)
  Sender: FDA-Public Use
  Company Number: PHHO2011US16148

PATIENT
  Age: 42 Year
  Sex: Male
  Weight: 86.5 kg

DRUGS (21)
  1. CERTICAN [Suspect]
     Indication: RENAL TRANSPLANT
     Dosage: 3.75 MG, BID
     Route: 048
     Dates: start: 20110709, end: 20110916
  2. CERTICAN [Suspect]
     Dosage: 3.75 MG, BID
     Route: 048
     Dates: start: 20111003, end: 20120125
  3. PREDNISONE [Suspect]
     Dosage: UNK
     Dates: start: 20110714
  4. PROGRAF [Suspect]
     Indication: RENAL TRANSPLANT
     Dosage: UNK
     Dates: start: 20110709
  5. ADALAT [Concomitant]
  6. BACTRIM [Concomitant]
  7. CLONIDINE [Concomitant]
  8. LASIX [Concomitant]
  9. LANTUS [Concomitant]
  10. LOPRESSOR [Concomitant]
  11. PRILOSEC [Concomitant]
  12. RENVELA [Concomitant]
  13. SIMVASTATIN [Concomitant]
  14. VALCYTE [Concomitant]
  15. IMODIUM [Concomitant]
  16. SODIUM BICARBONATE [Concomitant]
  17. NYSTATIN [Concomitant]
  18. ARANESP [Concomitant]
  19. FERROUS SULPHATE [Concomitant]
  20. LABETALOL [Concomitant]
  21. ASPIRIN [Concomitant]

REACTIONS (2)
  - Bronchitis [Recovered/Resolved with Sequelae]
  - Concomitant disease progression [Recovered/Resolved with Sequelae]
